FAERS Safety Report 4924742-4 (Version None)
Quarter: 2006Q1

REPORT INFORMATION
  Report Type: 
  Country: None (occurrence: None)
  Receive Date: 20060227
  Receipt Date: 20050419
  Transmission Date: 20060701
  Serious: Yes (Hospitalization, Disabling, Other)
  Sender: FDA-Public Use
  Company Number: US-MERCK-0504USA03726

PATIENT
  Age: 63 Year
  Sex: Male
  Weight: 123 kg

DRUGS (1)
  1. VIOXX [Suspect]
     Route: 048
     Dates: start: 20000124, end: 20040928

REACTIONS (5)
  - CEREBROVASCULAR ACCIDENT [None]
  - DEPRESSION [None]
  - INJURY [None]
  - MYOCARDIAL INFARCTION [None]
  - THROMBOSIS [None]
